FAERS Safety Report 16974298 (Version 4)
Quarter: 2020Q1

REPORT INFORMATION
  Report Type: Spontaneous
  Country: US (occurrence: US)
  Receive Date: 20191030
  Receipt Date: 20200110
  Transmission Date: 20200409
  Serious: Yes (Hospitalization)
  Sender: FDA-Public Use
  Company Number: US-HORIZON-RAV-0347-2019

PATIENT
  Age: 10 Month
  Sex: Male

DRUGS (2)
  1. PRILOSEC [Concomitant]
     Active Substance: OMEPRAZOLE MAGNESIUM
     Indication: GASTROOESOPHAGEAL REFLUX DISEASE
  2. RAVICTI [Suspect]
     Active Substance: GLYCEROL PHENYLBUTYRATE
     Indication: ORNITHINE TRANSCARBAMOYLASE DEFICIENCY
     Dosage: 1.3ML ORAL THREE TIMES DAILY
     Route: 048
     Dates: start: 201909

REACTIONS (7)
  - Ammonia increased [Recovered/Resolved]
  - Hypoperfusion [Unknown]
  - Complications of transplanted liver [Unknown]
  - Liver transplant [Recovered/Resolved]
  - Vomiting [Unknown]
  - Ammonia increased [Unknown]
  - Gastrooesophageal reflux disease [Unknown]

NARRATIVE: CASE EVENT DATE: 20191220
